FAERS Safety Report 24624335 (Version 1)
Quarter: 2024Q4

REPORT INFORMATION
  Report Type: Spontaneous
  Country: US (occurrence: US)
  Receive Date: 20241115
  Receipt Date: 20241115
  Transmission Date: 20250114
  Serious: Yes (Hospitalization, Other)
  Sender: UROGEN PHARMA
  Company Number: US-UROGEN PHARMA LTD.-2024-UGN-000142

PATIENT

DRUGS (1)
  1. JELMYTO [Suspect]
     Active Substance: MITOMYCIN
     Indication: Ureteric cancer
     Dosage: 80 MILLIGRAM, WEEKLY (INSTILLATION)
     Dates: start: 20240829, end: 20240829

REACTIONS (1)
  - Pyelonephritis [Not Recovered/Not Resolved]

NARRATIVE: CASE EVENT DATE: 20240924
